FAERS Safety Report 8224309-9 (Version None)
Quarter: 2012Q1

REPORT INFORMATION
  Report Type: 
  Country: None (occurrence: None)
  Receive Date: 20120321
  Receipt Date: 20120314
  Transmission Date: 20120608
  Serious: Yes (Other)
  Sender: FDA-Public Use
  Company Number: PHHY2012AU002607

PATIENT
  Sex: Female

DRUGS (24)
  1. LOMOTIL [Concomitant]
     Dosage: 2.5 MG/25 MCG
  2. METHOTREXATE [Concomitant]
     Dosage: 10 MG, 1 WEEKLY
     Route: 048
  3. METOPROLOL SUCCINATE [Concomitant]
     Dosage: 50 MG, BID
     Route: 048
  4. TEMAZEPAM [Concomitant]
     Dosage: 10 MG, 1 NOCTE P.R.N.
  5. PRILOSEC [Concomitant]
     Dosage: 20 MG, BID
     Route: 048
  6. PREDNISOLONE [Concomitant]
     Dosage: 5 MG, DAILY
  7. QUINACT [Concomitant]
     Dosage: 300 MG, 1 NOCTE P.R.N.
  8. PROCHLORPERAZINE [Concomitant]
     Dosage: 5 MG, UNK
  9. CORTIC [Concomitant]
     Dosage: 1 %, APPLY DAILY
     Route: 061
  10. DEPO-MEDROL [Concomitant]
     Dosage: 40 MG/ML, 1 M.D.U.
  11. PANAMAX [Concomitant]
     Dosage: 500 MG, QID
     Route: 048
  12. ASPIRIN [Concomitant]
     Dosage: 100 MG, UNK
     Route: 048
  13. PROLIA [Concomitant]
     Dosage: 60 MG, 1 M.D.U.
     Route: 058
  14. SYMBICORT [Concomitant]
     Dosage: UNK UKN, UNK
  15. ZOLEDRONOC ACID [Suspect]
     Indication: OSTEOPOROSIS
     Dosage: 5 MG, UNK
     Route: 042
     Dates: start: 20090101
  16. MICARDIS [Concomitant]
     Dosage: 80 MG, 1 DAILY
  17. SPIRIVA [Concomitant]
     Dosage: 18 MCG, 1 DAILY
  18. LATANOPROST [Concomitant]
     Dosage: 0.005 %, UNK
  19. ZOCOR [Concomitant]
     Dosage: 40 MG, 1 DAILY
     Route: 048
  20. COUMADIN [Concomitant]
     Dosage: 2 MG, DAILY
  21. MAXOLON [Concomitant]
     Dosage: 10 MG, TID
  22. ZOLEDRONOC ACID [Suspect]
     Dosage: 5 MG, UNK
     Route: 042
     Dates: start: 20101221
  23. FOLIC ACID [Concomitant]
     Dosage: 5 MG, 1 WEEKLY
  24. OXYCONTIN [Concomitant]
     Dosage: 5 MG, UNK

REACTIONS (6)
  - ASTHENIA [None]
  - LETHARGY [None]
  - PNEUMONIA [None]
  - MYALGIA [None]
  - INFLUENZA [None]
  - FEELING ABNORMAL [None]
